FAERS Safety Report 22253200 (Version 2)
Quarter: 2024Q1

REPORT INFORMATION
  Report Type: Spontaneous
  Country: CA (occurrence: CA)
  Receive Date: 20230426
  Receipt Date: 20240108
  Transmission Date: 20240410
  Serious: Yes (Hospitalization, Other)
  Sender: FDA-Public Use
  Company Number: CA-AUROBINDO-AUR-APL-2023-032117

PATIENT
  Age: 39 Year
  Sex: Female

DRUGS (23)
  1. GABAPENTIN [Suspect]
     Active Substance: GABAPENTIN
     Indication: Pain management
     Dosage: 600 MILLIGRAM, 3 TIMES A DAY
     Route: 065
  2. GABAPENTIN [Suspect]
     Active Substance: GABAPENTIN
     Indication: Alcohol use disorder
     Dosage: 500 MILLIGRAM, 3 TIMES A DAY
     Route: 065
  3. HYDROMORPHONE HYDROCHLORIDE [Suspect]
     Active Substance: HYDROMORPHONE HYDROCHLORIDE
     Indication: Pain management
     Dosage: 12 MILLIGRAM, ONCE A DAY
     Route: 042
  4. HYDROMORPHONE HYDROCHLORIDE [Suspect]
     Active Substance: HYDROMORPHONE HYDROCHLORIDE
     Indication: Analgesic therapy
     Dosage: 50 MILLIGRAM, ONCE A DAY
     Route: 042
  5. HYDROMORPHONE HYDROCHLORIDE [Suspect]
     Active Substance: HYDROMORPHONE HYDROCHLORIDE
     Dosage: 2 MILLIGRAM, AS NECESSARY
     Route: 042
  6. HYDROMORPHONE HYDROCHLORIDE [Suspect]
     Active Substance: HYDROMORPHONE HYDROCHLORIDE
     Dosage: 57.8 MILLIGRAM, ONCE A DAY
     Route: 042
  7. HYDROMORPHONE HYDROCHLORIDE [Suspect]
     Active Substance: HYDROMORPHONE HYDROCHLORIDE
     Dosage: UNK
     Route: 042
  8. HYDROMORPHONE HYDROCHLORIDE [Suspect]
     Active Substance: HYDROMORPHONE HYDROCHLORIDE
     Dosage: 0.4 MILLIGRAM
     Route: 042
  9. ACETAMINOPHEN [Suspect]
     Active Substance: ACETAMINOPHEN
     Indication: Pain management
     Dosage: 1 GRAM, 3 TIMES A DAY
     Route: 065
  10. HYDROMORPHONE [Suspect]
     Active Substance: HYDROMORPHONE
     Indication: Pain management
     Dosage: 243 MILLIGRAM, ONCE A DAY
     Route: 048
  11. HYDROMORPHONE [Suspect]
     Active Substance: HYDROMORPHONE
     Dosage: UNK
     Route: 048
  12. HYDROMORPHONE [Suspect]
     Active Substance: HYDROMORPHONE
     Dosage: 18 MILLIGRAM, 3 TIMES A DAY
     Route: 048
  13. HYDROMORPHONE [Suspect]
     Active Substance: HYDROMORPHONE
     Dosage: 9 MILLIGRAM, 3 TIMES A DAY
     Route: 048
  14. HYDROMORPHONE [Suspect]
     Active Substance: HYDROMORPHONE
     Dosage: 6 MILLIGRAM, 3 TIMES A DAY
     Route: 048
  15. HYDROMORPHONE [Suspect]
     Active Substance: HYDROMORPHONE
     Dosage: 12 MILLIGRAM, AS NECESSARY
     Route: 048
  16. HYDROMORPHONE [Suspect]
     Active Substance: HYDROMORPHONE
     Dosage: UNK, 3 TIMES A DAY
     Route: 048
  17. ROPIVACAINE HYDROCHLORIDE [Suspect]
     Active Substance: ROPIVACAINE HYDROCHLORIDE
     Indication: Postoperative analgesia
     Dosage: UNK
     Route: 042
  18. ROPIVACAINE HYDROCHLORIDE [Suspect]
     Active Substance: ROPIVACAINE HYDROCHLORIDE
     Indication: Pain management
     Dosage: UNK
     Route: 042
  19. ROPIVACAINE HYDROCHLORIDE [Suspect]
     Active Substance: ROPIVACAINE HYDROCHLORIDE
     Indication: Postoperative analgesia
     Dosage: UNK
     Route: 065
  20. ROPIVACAINE HYDROCHLORIDE [Suspect]
     Active Substance: ROPIVACAINE HYDROCHLORIDE
     Indication: Pain management
  21. KETOROLAC [Concomitant]
     Active Substance: KETOROLAC TROMETHAMINE
     Indication: Product used for unknown indication
     Dosage: 15 MILLIGRAM, FOUR TIMES/DAY
     Route: 042
  22. NAPROXEN [Concomitant]
     Active Substance: NAPROXEN
     Indication: Product used for unknown indication
     Dosage: 500 MILLIGRAM, TWO TIMES A DAY
     Route: 065
  23. NABILONE [Concomitant]
     Active Substance: NABILONE
     Indication: Product used for unknown indication
     Dosage: 1 DOSAGE FORM
     Route: 065

REACTIONS (2)
  - Drug ineffective [Unknown]
  - Therapy non-responder [Unknown]
